FAERS Safety Report 8672921 (Version 6)
Quarter: 2013Q1

REPORT INFORMATION
  Report Type: Spontaneous
  Country: US (occurrence: US)
  Receive Date: 20120719
  Receipt Date: 20130321
  Transmission Date: 20140127
  Serious: Yes (Hospitalization, Congenital Anomaly, Other)
  Sender: FDA-Public Use
  Company Number: US-PFIZER INC-2012170670

PATIENT
  Sex: Female
  Weight: 3.46 kg

DRUGS (16)
  1. ZOLOFT [Suspect]
     Indication: DEPRESSION
     Dosage: 50 MG, 1X/DAY
     Route: 064
     Dates: start: 20101210, end: 201106
  2. ZOLOFT [Suspect]
     Indication: ANXIETY
  3. ST. JOHN^S WORT [Concomitant]
     Dosage: UNK
     Route: 064
  4. TYLENOL [Concomitant]
     Dosage: UNK
     Route: 064
  5. PRENATAL VITAMINS [Concomitant]
     Dosage: UNK, ONE DAILY
     Route: 064
     Dates: start: 20101026
  6. IBUPROFEN [Concomitant]
     Dosage: UNK
     Route: 064
  7. TYLENOL COLD + FLU [Concomitant]
     Dosage: UNK
     Route: 064
  8. SERTRALINE [Concomitant]
     Dosage: 50 MG, UNK
     Route: 064
     Dates: start: 20101210
  9. CELESTONE [Concomitant]
     Dosage: 12.5 MG, 1X/DAY
     Route: 064
     Dates: start: 20110517
  10. CELESTONE [Concomitant]
     Dosage: 12.5 MG, 1X/DAY
     Route: 064
     Dates: start: 20110518
  11. BRETHINE [Concomitant]
     Dosage: 0.25 MG, 2X/DAY
     Route: 064
     Dates: start: 20110517
  12. PROCARDIA [Concomitant]
     Dosage: 20 MG, 1X/DAY
     Route: 064
     Dates: start: 20110517
  13. PROCARDIA [Concomitant]
     Dosage: 20 MG, 4X/DAY
     Route: 064
     Dates: start: 20110518
  14. ANCEF [Concomitant]
     Dosage: 2 G, 1X/DAY
     Route: 064
     Dates: start: 20110517
  15. ANCEF [Concomitant]
     Dosage: 2 G, 2X/DAY
     Route: 064
     Dates: start: 20110518
  16. NIFEDIPINE [Concomitant]
     Dosage: 20 MG, UNK
     Route: 064
     Dates: start: 20110518

REACTIONS (4)
  - Maternal exposure timing unspecified [Unknown]
  - Transposition of the great vessels [Unknown]
  - Adrenal insufficiency [Not Recovered/Not Resolved]
  - Atrial septal defect [Unknown]
